FAERS Safety Report 8029837-7 (Version None)
Quarter: 2011Q4

REPORT INFORMATION
  Report Type: 
  Country: None (occurrence: None)
  Receive Date: 20111130
  Receipt Date: 20110725
  Transmission Date: 20120403
  Serious: Yes (Hospitalization, Other)
  Sender: FDA-Public Use
  Company Number: US201001003859

PATIENT
  Age: 58 Year
  Sex: Female
  Weight: 127 kg

DRUGS (7)
  1. PROTONIX [Concomitant]
  2. GLUCOPHAGE [Concomitant]
  3. LIPITOR [Concomitant]
  4. ACCURETIC [Concomitant]
  5. INSULIN [Concomitant]
  6. BYETTA [Suspect]
     Dates: start: 20060401, end: 20081001
  7. EXENATIDE, DISPOSABLE DEVICE (EXENATIDE PEN ) PEN,DISPOSABLE [Concomitant]

REACTIONS (2)
  - PANCREATITIS ACUTE [None]
  - OFF LABEL USE [None]
